FAERS Safety Report 18222058 (Version 1)
Quarter: 2020Q3

REPORT INFORMATION
  Report Type: Spontaneous
  Country: US (occurrence: US)
  Receive Date: 20200901
  Receipt Date: 20200901
  Transmission Date: 20201103
  Serious: No
  Sender: FDA-Public Use
  Company Number: None

PATIENT
  Age: 68 Year
  Sex: Female

DRUGS (1)
  1. AZATHIOPRINE 50MG TAB AMNE [Suspect]
     Active Substance: AZATHIOPRINE
     Route: 048
     Dates: start: 201906, end: 201906

REACTIONS (4)
  - Alanine aminotransferase increased [None]
  - Pyrexia [None]
  - Hepatic enzyme increased [None]
  - Vomiting [None]

NARRATIVE: CASE EVENT DATE: 20200613
